FAERS Safety Report 7357137-7 (Version None)
Quarter: 2011Q1

REPORT INFORMATION
  Report Type: 
  Country: None (occurrence: None)
  Receive Date: 20110308
  Receipt Date: 20110224
  Transmission Date: 20110831
  Serious: Yes (Other)
  Sender: FDA-Public Use
  Company Number: 2010005201

PATIENT
  Age: 75 Year
  Sex: Male
  Weight: 40.9 kg

DRUGS (2)
  1. ALESION (ERPINASTINE HYDROCHLORIDE) [Concomitant]
  2. TARCEVA [Suspect]
     Indication: LUNG ADENOCARCINOMA
     Dosage: 150 MG, QD, ORAL
     Route: 048
     Dates: start: 20100201, end: 20101021

REACTIONS (4)
  - PNEUMOMEDIASTINUM [None]
  - PNEUMONIA [None]
  - HAEMOGLOBIN DECREASED [None]
  - RED BLOOD CELL COUNT DECREASED [None]
